FAERS Safety Report 23567734 (Version 1)
Quarter: 2024Q1

REPORT INFORMATION
  Report Type: Spontaneous
  Country: US (occurrence: US)
  Receive Date: 20240226
  Receipt Date: 20240226
  Transmission Date: 20240409
  Serious: No
  Sender: FDA-Public Use
  Company Number: US-ABBVIE-5651881

PATIENT
  Sex: Female

DRUGS (1)
  1. PREDNISOLONE ACETATE [Suspect]
     Active Substance: PREDNISOLONE ACETATE
     Indication: Product used for unknown indication
     Dosage: SKU 91118PY, FORM STRENGTH  10MG/ML SUSPENSION ?1% 5 ML
     Route: 047

REACTIONS (4)
  - Ocular hyperaemia [Unknown]
  - Throat irritation [Unknown]
  - Rash [Unknown]
  - Skin burning sensation [Unknown]
